FAERS Safety Report 5676584-2 (Version None)
Quarter: 2008Q1

REPORT INFORMATION
  Report Type: 
  Country: None (occurrence: None)
  Receive Date: 20080318
  Receipt Date: 20080305
  Transmission Date: 20080703
  Serious: Yes (Life-Threatening, Hospitalization)
  Sender: FDA-Public Use
  Company Number: 2007BI013932

PATIENT
  Age: 22 Year
  Sex: Male

DRUGS (3)
  1. AVONEX [Suspect]
     Indication: MULTIPLE SCLEROSIS
     Dosage: 30 UG QW IM
     Route: 030
     Dates: start: 20070531, end: 20070627
  2. SYMBICORT [Concomitant]
  3. SEROTEC [Concomitant]

REACTIONS (6)
  - ACCIDENT [None]
  - ANAEMIA [None]
  - ASTHMA [None]
  - FALL [None]
  - MULTIPLE INJURIES [None]
  - URINARY TRACT INFECTION [None]
